FAERS Safety Report 7229894-1 (Version None)
Quarter: 2011Q1

REPORT INFORMATION
  Report Type: 
  Country: None (occurrence: None)
  Receive Date: 20110117
  Receipt Date: 20110113
  Transmission Date: 20110831
  Serious: Yes (Hospitalization)
  Sender: FDA-Public Use
  Company Number: NL-MEDIMMUNE-MEDI-0012222

PATIENT
  Sex: Female
  Weight: 1.07 kg

DRUGS (2)
  1. SYNAGIS [Suspect]
     Route: 030
     Dates: start: 20101012, end: 20101012
  2. ACETYLSALICYLATE CALCIUM [Concomitant]
     Indication: HEART DISEASE CONGENITAL

REACTIONS (5)
  - DIARRHOEA [None]
  - PYREXIA [None]
  - VIRAL INFECTION [None]
  - FUNGAL INFECTION [None]
  - VOMITING [None]
